FAERS Safety Report 8423277-4 (Version None)
Quarter: 2012Q2

REPORT INFORMATION
  Report Type: 
  Country: None (occurrence: None)
  Receive Date: 20120608
  Receipt Date: 20120530
  Transmission Date: 20120825
  Serious: Yes (Other)
  Sender: FDA-Public Use
  Company Number: US-PFIZER INC-2012116574

PATIENT
  Sex: Male

DRUGS (1)
  1. EPIPEN JR. [Suspect]
     Dosage: STRENGTH: 0.15 MG

REACTIONS (1)
  - ACCIDENTAL EXPOSURE [None]
